FAERS Safety Report 17749681 (Version 1)
Quarter: 2020Q2

REPORT INFORMATION
  Report Type: Spontaneous
  Country: US (occurrence: US)
  Receive Date: 20200506
  Receipt Date: 20200506
  Transmission Date: 20200714
  Serious: No
  Sender: FDA-Public Use
  Company Number: US-009507513-2004USA006346

PATIENT
  Sex: Female

DRUGS (2)
  1. JANUMET [Suspect]
     Active Substance: METFORMIN HYDROCHLORIDE\SITAGLIPTIN PHOSPHATE
     Dosage: TWO TABLETS DAILY
     Route: 048
  2. JANUMET [Suspect]
     Active Substance: METFORMIN HYDROCHLORIDE\SITAGLIPTIN PHOSPHATE
     Dosage: ONE TABLET DAILY
     Route: 048

REACTIONS (5)
  - Incorrect dose administered [Unknown]
  - Blood glucose fluctuation [Unknown]
  - Inappropriate schedule of product administration [Unknown]
  - Dyspnoea exertional [Unknown]
  - Chemotherapy [Unknown]

NARRATIVE: CASE EVENT DATE: 201912
